FAERS Safety Report 7734856-1 (Version None)
Quarter: 2011Q3

REPORT INFORMATION
  Report Type: 
  Country: None (occurrence: None)
  Receive Date: 20110907
  Receipt Date: 20110825
  Transmission Date: 20111222
  Serious: Yes (Other)
  Sender: FDA-Public Use
  Company Number: ZA-NOVOPROD-324639

PATIENT

DRUGS (2)
  1. NOVOLOG MIX 70/30 [Suspect]
     Indication: GESTATIONAL DIABETES
     Dosage: 10 U, QD
     Route: 058
     Dates: start: 20110303
  2. CORTISONE ACETATE [Concomitant]
     Dosage: UNK
     Route: 065
     Dates: start: 20110307, end: 20110310

REACTIONS (4)
  - MATERNAL EXPOSURE DURING PREGNANCY [None]
  - HYPERTENSION [None]
  - BLOOD GLUCOSE INCREASED [None]
  - CAESAREAN SECTION [None]
